FAERS Safety Report 8350682-7 (Version None)
Quarter: 2012Q2

REPORT INFORMATION
  Report Type: 
  Country: None (occurrence: None)
  Receive Date: 20120510
  Receipt Date: 20120501
  Transmission Date: 20120825
  Serious: Yes (Other)
  Sender: FDA-Public Use
  Company Number: CN-JNJFOC-20110311954

PATIENT
  Sex: Female

DRUGS (2)
  1. MICONAZOLE NITRATE [Suspect]
     Indication: VULVOVAGINAL CANDIDIASIS
     Route: 067
     Dates: start: 20110324, end: 20110325
  2. MICONAZOLE NITRATE [Suspect]
     Route: 067

REACTIONS (1)
  - VAGINAL INFECTION [None]
